FAERS Safety Report 9748762 (Version 1)
Quarter: 2013Q4

REPORT INFORMATION
  Report Type: Report from Study
  Country: FR (occurrence: FR)
  Receive Date: 20131212
  Receipt Date: 20131212
  Transmission Date: 20140711
  Serious: Yes (Other)
  Sender: FDA-Public Use
  Company Number: FR-VERTEX PHARMACEUTICALS INC-2013-011715

PATIENT
  Age: 66 Year
  Sex: Male
  Weight: 77 kg

DRUGS (5)
  1. VX-950 (TELAPREVIR) [Suspect]
     Indication: HEPATITIS C
     Dosage: 750 MG, TID
     Dates: start: 20110915, end: 20111207
  2. COPEGUS [Suspect]
     Indication: HEPATITIS C
     Dosage: 1200 MG, QD
     Route: 065
     Dates: start: 20110915, end: 20111026
  3. COPEGUS [Suspect]
     Dosage: 600 MG, QD
     Route: 065
     Dates: start: 20111026, end: 20111116
  4. COPEGUS [Suspect]
     Dosage: 1200 MG, QD
     Route: 065
     Dates: start: 20111116
  5. PEGASYS [Concomitant]
     Indication: HEPATITIS C
     Dosage: 180 ?G, QW
     Route: 065
     Dates: start: 20110915

REACTIONS (1)
  - Leukopenia [Unknown]
